FAERS Safety Report 5772848-2 (Version None)
Quarter: 2008Q2

REPORT INFORMATION
  Report Type: 
  Country: None (occurrence: None)
  Receive Date: 20080611
  Receipt Date: 20080530
  Transmission Date: 20081010
  Serious: Yes (Other)
  Sender: FDA-Public Use
  Company Number: S08-USA-01967-01

PATIENT
  Age: 56 Year
  Sex: Female
  Weight: 77.1115 kg

DRUGS (7)
  1. THYROID TAB [Suspect]
     Indication: HYPOTHYROIDISM
     Dosage: 60 MG QD PO
     Route: 048
     Dates: start: 19880101, end: 20071201
  2. THYROID TAB [Suspect]
     Indication: HYPOTHYROIDISM
     Dosage: 30 MG QD PO
     Route: 048
     Dates: start: 20071201, end: 20080501
  3. THYROID TAB [Suspect]
     Indication: HYPOTHYROIDISM
     Dosage: 90 MG QD PO
     Route: 048
     Dates: start: 20080501, end: 20080531
  4. THYROID TAB [Suspect]
     Indication: HYPOTHYROIDISM
     Dosage: 120 MG QD PO
     Route: 048
     Dates: start: 20080601
  5. MULTIVITAMIN (NOS) [Concomitant]
  6. LIQUID IODINE SUPPLEMENT (NOS) [Concomitant]
  7. ^THYROID ENERGY^ [Concomitant]

REACTIONS (10)
  - BLOOD THYROID STIMULATING HORMONE INCREASED [None]
  - CHEST PAIN [None]
  - EXOSTOSIS [None]
  - FALL [None]
  - FATIGUE [None]
  - GOITRE [None]
  - INTERVERTEBRAL DISC PROTRUSION [None]
  - THYROID NEOPLASM [None]
  - THYROXINE DECREASED [None]
  - WEIGHT INCREASED [None]
